FAERS Safety Report 4894743-3 (Version None)
Quarter: 2006Q1

REPORT INFORMATION
  Report Type: 
  Country: None (occurrence: None)
  Receive Date: 20060127
  Receipt Date: 20060127
  Transmission Date: 20060701
  Serious: Yes (Life-Threatening, Hospitalization)
  Sender: FDA-Public Use
  Company Number: None

PATIENT
  Sex: Male
  Weight: 81 kg

DRUGS (2)
  1. CETUXIMAB (400 MG/M2) [Suspect]
     Indication: OESOPHAGEAL CARCINOMA
     Dosage: 400 ONCE IV
     Route: 042
     Dates: start: 20050927
  2. CETUXIMAB 250 MG/M2) [Suspect]
     Indication: OESOPHAGEAL CARCINOMA
     Dosage: 250 WEEKLY IV
     Route: 042
     Dates: start: 20051004, end: 20050110

REACTIONS (5)
  - CONSTIPATION [None]
  - DISEASE PROGRESSION [None]
  - INTESTINAL ISCHAEMIA [None]
  - SMALL INTESTINAL OBSTRUCTION [None]
  - VOLVULUS [None]
